FAERS Safety Report 6609566-4 (Version None)
Quarter: 2010Q1

REPORT INFORMATION
  Report Type: 
  Country: None (occurrence: None)
  Receive Date: 20100224
  Receipt Date: 20100208
  Transmission Date: 20100710
  Serious: Yes (Other)
  Sender: FDA-Public Use
  Company Number: VAL_00379_2010

PATIENT
  Sex: Male

DRUGS (6)
  1. CALCITRIOL [Suspect]
     Indication: HYPERPARATHYROIDISM
     Dosage: MULTIPLE ROUTES OF ADMINISTRATION (ORAL AND INTRAVENOUS BOLUS))
     Route: 048
     Dates: start: 19960101
  2. ALFACALCIDOL (ALFACALCIDOL) [Suspect]
     Indication: HYPERPARATHYROIDISM
     Dosage: DF ORAL
     Route: 048
     Dates: start: 19960101
  3. CALCIUM CARBONATE [Suspect]
     Indication: HYPERPHOSPHATAEMIA
     Dosage: DF UNKNOWN
     Dates: start: 19990101
  4. ALUSAL (ALUSSAL-ALUMINUM HYDROXIDE) [Suspect]
     Indication: HYPERPHOSPHATAEMIA
     Dosage: DF UNKNOWN
     Dates: start: 19990101
  5. VENTER (VENTER-ASCORBIC ACID/PARACETAMOL/PHENYLEPRHINE/SALICYLAMIDE) ( [Suspect]
     Indication: HYPERPHOSPHATAEMIA
     Dosage: DF UNKNOWN
     Dates: start: 19990101
  6. SEVELAMER (SEVELAMER-SEVELAMER HYDROCHLORIDE) [Suspect]
     Indication: HYPERPHOSPHATAEMIA
     Dosage: DF UNKNOWN
     Dates: start: 19990101

REACTIONS (13)
  - CALCINOSIS [None]
  - CALCIUM PHOSPHATE PRODUCT INCREASED [None]
  - CEREBRAL CALCIFICATION [None]
  - CONDITION AGGRAVATED [None]
  - DRUG RESISTANCE [None]
  - HAEMODIALYSIS [None]
  - HEADACHE [None]
  - HYPERCALCAEMIA [None]
  - HYPERPARATHYROIDISM [None]
  - HYPERPHOSPHATAEMIA [None]
  - RENAL OSTEODYSTROPHY [None]
  - TREATMENT FAILURE [None]
  - TREATMENT NONCOMPLIANCE [None]
